FAERS Safety Report 4861063-2 (Version None)
Quarter: 2005Q4

REPORT INFORMATION
  Report Type: 
  Country: None (occurrence: None)
  Receive Date: 20051220
  Receipt Date: 20051028
  Transmission Date: 20060501
  Serious: Yes (Other)
  Sender: FDA-Public Use
  Company Number: US-GLAXOSMITHKLINE-A0580209A

PATIENT
  Age: 37 Year
  Sex: Female
  Weight: 191.2 kg

DRUGS (4)
  1. ROPINIROLE [Suspect]
     Indication: RESTLESS LEGS SYNDROME
     Route: 048
     Dates: start: 20050818, end: 20051026
  2. ATENOLOL [Concomitant]
  3. BENADRYL [Concomitant]
  4. ORTHO TRI-CYCLEN [Concomitant]

REACTIONS (7)
  - DIZZINESS [None]
  - HYPERHIDROSIS [None]
  - MALAISE [None]
  - NAUSEA [None]
  - SENSATION OF FOREIGN BODY [None]
  - SYNCOPE VASOVAGAL [None]
  - THROAT IRRITATION [None]
